FAERS Safety Report 12426019 (Version 2)
Quarter: 2019Q1

REPORT INFORMATION
  Report Type: Report from Study
  Country: BE (occurrence: BE)
  Receive Date: 20160601
  Receipt Date: 20190305
  Transmission Date: 20190417
  Serious: Yes (Death, Hospitalization, Other)
  Sender: FDA-Public Use
  Company Number: BE-CELGENEUS-BEL-2015051145

PATIENT
  Age: 78 Year
  Sex: Male
  Weight: 65 kg

DRUGS (15)
  1. ABRAXANE [Suspect]
     Active Substance: PACLITAXEL
     Indication: PANCREATIC CARCINOMA
     Route: 041
     Dates: start: 20150311, end: 20150416
  2. GEMCITABINE [Suspect]
     Active Substance: GEMCITABINE\GEMCITABINE HYDROCHLORIDE
     Indication: PANCREATIC CARCINOMA METASTATIC
     Route: 041
     Dates: start: 20150311, end: 20150416
  3. MEDROL [Concomitant]
     Active Substance: METHYLPREDNISOLONE
     Dosage: 16 MILLIGRAM
     Route: 048
     Dates: start: 20150606, end: 20150606
  4. MEDROL [Concomitant]
     Active Substance: METHYLPREDNISOLONE
     Dosage: 20 MILLIGRAM
     Route: 048
     Dates: start: 20150602, end: 20150604
  5. MEDROL [Concomitant]
     Active Substance: METHYLPREDNISOLONE
     Dosage: 32 MILLIGRAM
     Route: 048
     Dates: start: 20150605, end: 20150605
  6. PANTOMED [Concomitant]
     Dosage: 70ML IN 60ML
     Route: 041
     Dates: start: 20150428, end: 20150518
  7. MEDROL [Concomitant]
     Active Substance: METHYLPREDNISOLONE
     Indication: NAUSEA
     Dosage: 32 MILLIGRAM
     Route: 048
     Dates: start: 20150318
  8. MEDROL [Concomitant]
     Active Substance: METHYLPREDNISOLONE
     Dosage: 28 MILLIGRAM
     Route: 048
     Dates: start: 20150523, end: 20150526
  9. MEDROL [Concomitant]
     Active Substance: METHYLPREDNISOLONE
     Dosage: 24 MILLIGRAM
     Route: 048
     Dates: start: 20150527, end: 20150530
  10. MEDROL [Concomitant]
     Active Substance: METHYLPREDNISOLONE
     Dosage: VARIOUS DOSE 32/20/16 MG
     Route: 048
     Dates: start: 20150519, end: 20150522
  11. MEDROL [Concomitant]
     Active Substance: METHYLPREDNISOLONE
     Dosage: 32 MILLIGRAM
     Route: 048
     Dates: start: 20150607
  12. MEDROL [Concomitant]
     Active Substance: METHYLPREDNISOLONE
     Dosage: VARIOUS DOSE 32/20/16 MG
     Route: 048
     Dates: start: 20150531, end: 20150601
  13. DAFALGAN [Concomitant]
     Active Substance: ACETAMINOPHEN
     Indication: PYREXIA
     Route: 048
     Dates: start: 20150311
  14. LISINOPRIL. [Concomitant]
     Active Substance: LISINOPRIL
     Indication: HYPERTENSION
     Dosage: 10 MILLIGRAM
     Route: 048
     Dates: start: 20141001
  15. PANTOMED [Concomitant]
     Indication: OESOPHAGITIS
     Dosage: 40 MILLIGRAM
     Route: 048
     Dates: start: 20150319

REACTIONS (9)
  - Embolism [Recovered/Resolved]
  - Septic shock [Recovered/Resolved]
  - Jaundice [Fatal]
  - Blood bilirubin increased [Fatal]
  - Jaundice [Not Recovered/Not Resolved]
  - Acute kidney injury [Recovered/Resolved]
  - Pneumonia [Recovered/Resolved]
  - Hepatic failure [Fatal]
  - Urinary tract infection [Fatal]

NARRATIVE: CASE EVENT DATE: 20150427
